FAERS Safety Report 5464464-7 (Version None)
Quarter: 2007Q3

REPORT INFORMATION
  Report Type: 
  Country: None (occurrence: None)
  Receive Date: 20070921
  Receipt Date: 20070914
  Transmission Date: 20080115
  Serious: No
  Sender: FDA-Public Use
  Company Number: FR-AVENTIS-200712462FR

PATIENT
  Age: 33 Year
  Sex: Female

DRUGS (4)
  1. ARAVA [Suspect]
     Indication: RHEUMATOID ARTHRITIS
     Route: 048
     Dates: end: 20060101
  2. ENBREL [Concomitant]
     Indication: RHEUMATOID ARTHRITIS
     Route: 058
     Dates: start: 20060301, end: 20070701
  3. ARTHROTEC [Concomitant]
     Indication: RHEUMATOID ARTHRITIS
     Route: 048
     Dates: end: 20070701
  4. NOVATREX                           /00113801/ [Concomitant]
     Indication: RHEUMATOID ARTHRITIS
     Route: 048

REACTIONS (4)
  - DRUG EXPOSURE DURING PREGNANCY [None]
  - MEDICATION ERROR [None]
  - NO ADVERSE DRUG REACTION [None]
  - NO ADVERSE REACTION [None]
